FAERS Safety Report 6619929-9 (Version None)
Quarter: 2010Q1

REPORT INFORMATION
  Report Type: 
  Country: None (occurrence: None)
  Receive Date: 20100309
  Receipt Date: 20100308
  Transmission Date: 20100710
  Serious: Yes (Death)
  Sender: FDA-Public Use
  Company Number: JP-B.I. PHARMACEUTICALS,INC./RIDGEFIELD-2010-BP-02674NB

PATIENT
  Sex: Male
  Weight: 70 kg

DRUGS (8)
  1. MICARDIS [Suspect]
     Indication: HYPERTENSION
     Route: 048
  2. PLETAL [Concomitant]
     Route: 048
  3. FAMOSTAGINE-D [Concomitant]
     Route: 048
  4. CARDENALIN [Concomitant]
     Route: 048
  5. LASIX [Concomitant]
     Route: 048
  6. LIPITOR [Concomitant]
     Route: 048
  7. VITAMEDIN [Concomitant]
     Route: 048
  8. BENFOTIAMINE [Concomitant]
     Route: 048

REACTIONS (1)
  - DEATH [None]
